FAERS Safety Report 15716470 (Version 15)
Quarter: 2020Q3

REPORT INFORMATION
  Report Type: Spontaneous
  Country: US (occurrence: US)
  Receive Date: 20181213
  Receipt Date: 20200807
  Transmission Date: 20201102
  Serious: Yes (Other)
  Sender: FDA-Public Use
  Company Number: US-HTU-2016US015992

PATIENT
  Age: 71 Year
  Sex: Female

DRUGS (14)
  1. VALCHLOR [Suspect]
     Active Substance: MECHLORETHAMINE
     Dosage: THIN FILM, QD
     Route: 061
  2. VALCHLOR [Suspect]
     Active Substance: MECHLORETHAMINE
     Dosage: UNK, 4?5/WEEK
     Route: 061
  3. LANTUS [Concomitant]
     Active Substance: INSULIN GLARGINE
     Dosage: UNK
  4. BENADRYL [Concomitant]
     Active Substance: DIPHENHYDRAMINE HYDROCHLORIDE
  5. METFORMIN HCL [Concomitant]
     Active Substance: METFORMIN HYDROCHLORIDE
     Dosage: UNK
  6. ALLERGY [Concomitant]
     Active Substance: UNSPECIFIED INGREDIENT
     Dosage: UNK
  7. FOLIC ACID. [Concomitant]
     Active Substance: FOLIC ACID
  8. MOMETASONE FUROATE. [Concomitant]
     Active Substance: MOMETASONE FUROATE
     Indication: PRODUCT USED FOR UNKNOWN INDICATION
     Dosage: UNK, UNKNOWN
     Dates: start: 20150615
  9. METHOTREXATE. [Concomitant]
     Active Substance: METHOTREXATE
  10. VALCHLOR [Suspect]
     Active Substance: MECHLORETHAMINE
     Indication: CUTANEOUS T-CELL LYMPHOMA
     Dosage: UNK, 3/WEEK
     Route: 061
     Dates: start: 20150612
  11. TRIAMCINOLONE ACETONIDE. [Concomitant]
     Active Substance: TRIAMCINOLONE ACETONIDE
     Indication: PRODUCT USED FOR UNKNOWN INDICATION
     Dosage: UNK, UNKNOWN
     Dates: start: 20150611
  12. PRAMOSONE [Concomitant]
     Active Substance: HYDROCORTISONE ACETATE\PRAMOXINE HYDROCHLORIDE
     Indication: PRODUCT USED FOR UNKNOWN INDICATION
     Dosage: UNK, UNKNOWN
     Dates: start: 20150615
  13. SEROQUEL [Concomitant]
     Active Substance: QUETIAPINE FUMARATE
     Dosage: UNK
  14. NOVOLOG [Concomitant]
     Active Substance: INSULIN ASPART

REACTIONS (20)
  - Treatment noncompliance [Unknown]
  - Intentional product use issue [Unknown]
  - Application site rash [Unknown]
  - Rash [Not Recovered/Not Resolved]
  - Drug ineffective [Unknown]
  - Dry skin [Not Recovered/Not Resolved]
  - Pain of skin [Not Recovered/Not Resolved]
  - Off label use [Unknown]
  - Rash pruritic [Unknown]
  - Malignant neoplasm progression [Not Recovered/Not Resolved]
  - Condition aggravated [Recovering/Resolving]
  - Skin exfoliation [Not Recovered/Not Resolved]
  - Skin weeping [Unknown]
  - Erythema [Unknown]
  - Skin burning sensation [Not Recovered/Not Resolved]
  - Application site exfoliation [Recovering/Resolving]
  - Application site erythema [Unknown]
  - Pruritus [Not Recovered/Not Resolved]
  - Rash macular [Unknown]
  - Application site pruritus [Recovering/Resolving]

NARRATIVE: CASE EVENT DATE: 201904
